FAERS Safety Report 4578757-9 (Version None)
Quarter: 2005Q1

REPORT INFORMATION
  Report Type: 
  Country: None (occurrence: None)
  Receive Date: 20050211
  Receipt Date: 20041222
  Transmission Date: 20050727
  Serious: Yes (Other)
  Sender: FDA-Public Use
  Company Number: PHBS2004JP17256

PATIENT
  Age: 72 Year
  Sex: Female

DRUGS (6)
  1. ROHYPNOL [Suspect]
     Indication: INSOMNIA
     Dosage: 2 MG/D
     Route: 048
     Dates: start: 20040901
  2. SEROQUEL [Suspect]
     Indication: DEPRESSION
     Dosage: 30 MG/D
     Route: 048
     Dates: start: 20040909
  3. TECIPUL [Suspect]
     Indication: DEPRESSION
     Dosage: 6 MG/D
     Route: 048
     Dates: start: 20040901, end: 20050112
  4. SEPAZON [Suspect]
     Indication: DEPRESSION
     Dosage: 2 MG/D
     Route: 048
     Dates: start: 20040804, end: 20050202
  5. AMOBAN [Concomitant]
  6. RITALIN [Suspect]
     Indication: DEPRESSION
     Dosage: 30 MG/D
     Route: 048
     Dates: start: 20040915

REACTIONS (8)
  - ANAEMIA [None]
  - BLOOD ALKALINE PHOSPHATASE INCREASED [None]
  - HAEMOGLOBIN DECREASED [None]
  - MALAISE [None]
  - PANCYTOPENIA [None]
  - PLATELET COUNT DECREASED [None]
  - RED BLOOD CELL COUNT DECREASED [None]
  - WHITE BLOOD CELL COUNT DECREASED [None]
